FAERS Safety Report 17147638 (Version 2)
Quarter: 2024Q1

REPORT INFORMATION
  Report Type: Spontaneous
  Country: FR (occurrence: FR)
  Receive Date: 20191212
  Receipt Date: 20240311
  Transmission Date: 20240410
  Serious: Yes (Other)
  Sender: FDA-Public Use
  Company Number: FR-OTSUKA-2019_041249

PATIENT
  Age: 9 Year
  Sex: Male

DRUGS (36)
  1. BUSULFAN [Suspect]
     Active Substance: BUSULFAN
     Indication: Product used for unknown indication
     Dosage: 1.2 MG/KG, QID (4/DAY)
     Route: 065
  2. CYCLOSPORINE [Suspect]
     Active Substance: CYCLOSPORINE
     Indication: Graft versus host disease
     Dosage: UNK
     Route: 065
  3. THYMOGLOBULIN [Suspect]
     Active Substance: LAPINE T-LYMPHOCYTE IMMUNE GLOBULIN
     Indication: Graft versus host disease
     Dosage: UNK
     Route: 065
  4. MYCOPHENOLATE MOFETIL [Suspect]
     Active Substance: MYCOPHENOLATE MOFETIL
     Indication: Immunosuppression
     Dosage: UNK
     Route: 065
  5. MYCOPHENOLATE MOFETIL [Suspect]
     Active Substance: MYCOPHENOLATE MOFETIL
     Indication: Acute graft versus host disease in intestine
  6. MYCOPHENOLATE MOFETIL [Suspect]
     Active Substance: MYCOPHENOLATE MOFETIL
     Indication: Acute graft versus host disease in skin
  7. METHOTREXATE [Suspect]
     Active Substance: METHOTREXATE
     Indication: Graft versus host disease
     Dosage: UNK
     Route: 065
  8. INFLIXIMAB [Suspect]
     Active Substance: INFLIXIMAB
     Indication: Immunosuppression
     Dosage: UNK
     Route: 065
  9. INFLIXIMAB [Suspect]
     Active Substance: INFLIXIMAB
     Indication: Chronic graft versus host disease in intestine
  10. INFLIXIMAB [Suspect]
     Active Substance: INFLIXIMAB
     Indication: Graft versus host disease in lung
  11. INFLIXIMAB [Suspect]
     Active Substance: INFLIXIMAB
     Indication: Chronic graft versus host disease in skin
  12. RITUXIMAB [Suspect]
     Active Substance: RITUXIMAB
     Indication: Immunosuppression
     Dosage: UNK
     Route: 065
  13. RITUXIMAB [Suspect]
     Active Substance: RITUXIMAB
     Indication: Chronic graft versus host disease in skin
  14. RITUXIMAB [Suspect]
     Active Substance: RITUXIMAB
     Indication: Chronic graft versus host disease in intestine
  15. RITUXIMAB [Suspect]
     Active Substance: RITUXIMAB
     Indication: Graft versus host disease in lung
  16. BASILIXIMAB [Suspect]
     Active Substance: BASILIXIMAB
     Indication: Immunosuppression
     Dosage: UNK
     Route: 065
  17. BASILIXIMAB [Suspect]
     Active Substance: BASILIXIMAB
     Indication: Chronic graft versus host disease in intestine
  18. BASILIXIMAB [Suspect]
     Active Substance: BASILIXIMAB
     Indication: Graft versus host disease in lung
  19. BASILIXIMAB [Suspect]
     Active Substance: BASILIXIMAB
     Indication: Chronic graft versus host disease in skin
  20. CYCLOPHOSPHAMIDE ANHYDROUS [Suspect]
     Active Substance: CYCLOPHOSPHAMIDE ANHYDROUS
     Indication: Product used for unknown indication
     Dosage: 50 MG/KG, 4X PER DAY
     Route: 065
  21. CYTARABINE [Suspect]
     Active Substance: CYTARABINE
     Indication: Acute myeloid leukaemia
     Dosage: 3 G/M2, BID (2/DAY) CYCLICAL ON D1, D2, D8, D9
     Route: 065
  22. CYTARABINE [Suspect]
     Active Substance: CYTARABINE
     Dosage: 200 MG/M2/DAY, CYCLICAL
     Route: 065
  23. CYTARABINE [Suspect]
     Active Substance: CYTARABINE
     Dosage: 2 G/M2/DAY, CYCLICAL ON D2 TO D6
     Route: 065
  24. CYTARABINE [Suspect]
     Active Substance: CYTARABINE
     Dosage: 200 MG/M2/DAY, CYCLICAL
     Route: 065
  25. NOVANTRONE [Suspect]
     Active Substance: MITOXANTRONE HYDROCHLORIDE
     Indication: Acute myeloid leukaemia
     Dosage: 10 MG/M2/DAY, CYCLICAL
     Route: 065
  26. AMSACRINE [Suspect]
     Active Substance: AMSACRINE
     Indication: Acute myeloid leukaemia
     Dosage: 100 MG/M2, BID (2/DAY) CYCLICAL
     Route: 065
  27. DAUNORUBICIN [Suspect]
     Active Substance: DAUNORUBICIN
     Indication: Acute myeloid leukaemia
     Dosage: 40 MG/M2, DAILY, CYCLICAL
     Route: 065
  28. ETOPOSIDE [Suspect]
     Active Substance: ETOPOSIDE
     Indication: Acute myeloid leukaemia
     Dosage: 100 MG/M2/DAY, CYCLICAL
     Route: 065
  29. ASPARAGINASE [Suspect]
     Active Substance: ASPARAGINASE
     Indication: Acute myeloid leukaemia
     Dosage: 6000 U/M2/DAY D2, D9
     Route: 065
  30. FLUDARABINE [Suspect]
     Active Substance: FLUDARABINE PHOSPHATE
     Indication: Acute myeloid leukaemia
     Dosage: 30 MG/M2 ONCE DAILY, FROM D2 TO D6
     Route: 065
  31. GRANULOCYTE COLONY-STIMULATING FACTOR NOS [Suspect]
     Active Substance: GRANULOCYTE COLONY-STIMULATING FACTOR NOS
     Indication: Acute myeloid leukaemia
     Dosage: UNK, CYCLICAL FROM D1 TO D6
     Route: 065
  32. GRANULOCYTE COLONY-STIMULATING FACTOR NOS [Suspect]
     Active Substance: GRANULOCYTE COLONY-STIMULATING FACTOR NOS
     Dosage: FROM D1 TO D6
     Route: 065
  33. IDARUBICIN [Suspect]
     Active Substance: IDARUBICIN
     Indication: Acute myeloid leukaemia
     Dosage: 8 MG/M2, QD (1/DAY), D2, D4, D6
     Route: 065
  34. AMOXICILLIN [Suspect]
     Active Substance: AMOXICILLIN
     Indication: Antibiotic prophylaxis
     Dosage: UNK
     Route: 065
  35. ZOVIRAX [Suspect]
     Active Substance: ACYCLOVIR
     Indication: Product used for unknown indication
     Dosage: UNK
     Route: 065
  36. PROGRAF [Suspect]
     Active Substance: TACROLIMUS
     Indication: Graft versus host disease
     Dosage: 0.5 MG, EVERY OTHER DAY
     Route: 048
     Dates: start: 200906, end: 20101014

REACTIONS (8)
  - Tooth disorder [Unknown]
  - Enamel anomaly [Unknown]
  - Tooth hypoplasia [Not Recovered/Not Resolved]
  - Bronchopulmonary aspergillosis [Recovered/Resolved]
  - Mucormycosis [Recovered/Resolved]
  - Acute graft versus host disease in intestine [Unknown]
  - Acute graft versus host disease in skin [Unknown]
  - Chronic graft versus host disease [Unknown]
